FAERS Safety Report 6495778-X (Version None)
Quarter: 2009Q4

REPORT INFORMATION
  Report Type: 
  Country: None (occurrence: None)
  Receive Date: 20091214
  Receipt Date: 20090812
  Transmission Date: 20100525
  Serious: No
  Sender: FDA-Public Use
  Company Number: US-BRISTOL-MYERS SQUIBB COMPANY-14738447

PATIENT
  Age: 17 Year
  Sex: Female

DRUGS (2)
  1. ABILIFY [Suspect]
     Indication: AGITATION
     Dosage: INITIALLY 2MG FOR 3 WEEKS TAKEN. DOSE REDUCED TO 2MG FROM 5MG.
  2. ABILIFY [Suspect]
     Indication: AGGRESSION
     Dosage: INITIALLY 2MG FOR 3 WEEKS TAKEN. DOSE REDUCED TO 2MG FROM 5MG.

REACTIONS (1)
  - DYSKINESIA [None]
